FAERS Safety Report 15934302 (Version 3)
Quarter: 2019Q3

REPORT INFORMATION
  Report Type: Spontaneous
  Country: US (occurrence: US)
  Receive Date: 20190207
  Receipt Date: 20190730
  Transmission Date: 20191004
  Serious: Yes (Other)
  Sender: FDA-Public Use
  Company Number: US-ASTRAZENECA-2018SF65577

PATIENT
  Sex: Female

DRUGS (41)
  1. SIMVASTATIN. [Concomitant]
     Active Substance: SIMVASTATIN
  2. DYAZIDE [Concomitant]
     Active Substance: HYDROCHLOROTHIAZIDE\TRIAMTERENE
     Indication: HYPERTENSION
  3. PEPCID [Concomitant]
     Active Substance: FAMOTIDINE
  4. NEXIUM [Suspect]
     Active Substance: ESOMEPRAZOLE MAGNESIUM
     Indication: GASTROOESOPHAGEAL REFLUX DISEASE
     Route: 048
     Dates: start: 2007
  5. GARAMYCIN [Concomitant]
     Active Substance: GENTAMICIN SULFATE
     Indication: UPPER RESPIRATORY TRACT INFECTION
  6. ERYTHROMYCIN. [Concomitant]
     Active Substance: ERYTHROMYCIN
     Indication: ABDOMINAL PAIN UPPER
  7. PROTONIX [Suspect]
     Active Substance: PANTOPRAZOLE SODIUM
     Indication: ULCER
     Dosage: 40 AND 30MG
     Route: 065
     Dates: start: 2007
  8. PREVACID [Suspect]
     Active Substance: LANSOPRAZOLE
     Indication: GASTROOESOPHAGEAL REFLUX DISEASE
     Dosage: 40 AND 30 MG
     Route: 065
     Dates: start: 2007
  9. PREVACID [Suspect]
     Active Substance: LANSOPRAZOLE
     Indication: ULCER
     Dosage: 40 AND 30 MG
     Route: 065
     Dates: start: 2007
  10. HYDRALAZINE [Concomitant]
     Active Substance: HYDRALAZINE HYDROCHLORIDE
  11. ZITHROMAX [Concomitant]
     Active Substance: AZITHROMYCIN DIHYDRATE
     Indication: PNEUMONIA
  12. AMOXICILLIN. [Concomitant]
     Active Substance: AMOXICILLIN
     Indication: ANTIBIOTIC LEVEL
  13. BACTRIM [Concomitant]
     Active Substance: SULFAMETHOXAZOLE\TRIMETHOPRIM
     Indication: INFECTION
  14. LASIX [Concomitant]
     Active Substance: FUROSEMIDE
     Indication: HYPERTENSION
  15. BENADRYL [Concomitant]
     Active Substance: DIPHENHYDRAMINE HYDROCHLORIDE
  16. ALLOPURINOL. [Concomitant]
     Active Substance: ALLOPURINOL
     Indication: GOUT
  17. AMITRIPTYLINE [Concomitant]
     Active Substance: AMITRIPTYLINE
  18. HYDROCODONE [Concomitant]
     Active Substance: HYDROCODONE
  19. LEVAQUIN [Concomitant]
     Active Substance: LEVOFLOXACIN
     Indication: PNEUMONIA
  20. LIPITOR [Concomitant]
     Active Substance: ATORVASTATIN CALCIUM
     Indication: HYPERTENSION
  21. CELEBREX [Concomitant]
     Active Substance: CELECOXIB
     Indication: NERVE INJURY
  22. OXYMORPHONE [Concomitant]
     Active Substance: OXYMORPHONE
     Indication: PAIN
  23. NEOMYCIN. [Concomitant]
     Active Substance: NEOMYCIN
     Indication: UPPER RESPIRATORY TRACT INFECTION
  24. GLIMEPIRIDE. [Concomitant]
     Active Substance: GLIMEPIRIDE
  25. VITAMIN D [Concomitant]
     Active Substance: VITAMIN D NOS
  26. ELAVIL [Concomitant]
     Active Substance: AMITRIPTYLINE HYDROCHLORIDE
  27. TRAMADOL. [Concomitant]
     Active Substance: TRAMADOL
     Indication: PAIN
  28. MELOXICAM. [Concomitant]
     Active Substance: MELOXICAM
     Indication: ANTIBIOTIC LEVEL
  29. CAPOTEN [Concomitant]
     Active Substance: CAPTOPRIL
     Indication: HYPERTENSION
  30. ASPIRIN. [Concomitant]
     Active Substance: ASPIRIN
  31. PROTONIX [Suspect]
     Active Substance: PANTOPRAZOLE SODIUM
     Indication: GASTROOESOPHAGEAL REFLUX DISEASE
     Dosage: 40 AND 30MG
     Route: 065
     Dates: start: 2007
  32. CARVEDILOL. [Concomitant]
     Active Substance: CARVEDILOL
  33. VIBRAMYCIN [Concomitant]
     Active Substance: DOXYCYCLINE
     Indication: UPPER RESPIRATORY TRACT INFECTION
  34. PENICILLIN [Concomitant]
     Active Substance: PENICILLIN
  35. TUMS [Concomitant]
     Active Substance: CALCIUM CARBONATE
  36. NEXIUM 24HR [Suspect]
     Active Substance: ESOMEPRAZOLE MAGNESIUM
     Indication: GASTROOESOPHAGEAL REFLUX DISEASE
     Route: 048
     Dates: start: 2007
  37. DURICEF [Concomitant]
     Active Substance: CEFADROXIL
     Indication: BRONCHITIS
  38. KEFLEX [Concomitant]
     Active Substance: CEPHALEXIN
     Indication: BRONCHITIS
  39. MELOXICAM. [Concomitant]
     Active Substance: MELOXICAM
     Indication: ANTIBIOTIC LEVEL
  40. BENETHAMINE PENICILLIN [Concomitant]
     Active Substance: BENETHAMINE PENICILLIN
     Indication: UPPER RESPIRATORY FUNGAL INFECTION
  41. LISINOPRIL. [Concomitant]
     Active Substance: LISINOPRIL
     Indication: HYPERTENSION

REACTIONS (4)
  - Rebound acid hypersecretion [Unknown]
  - Renal failure [Unknown]
  - Acute kidney injury [Unknown]
  - Chronic kidney disease [Not Recovered/Not Resolved]
